FAERS Safety Report 10530909 (Version 2)
Quarter: 2014Q4

REPORT INFORMATION
  Report Type: Report from Study
  Country: MW (occurrence: MW)
  Receive Date: 20141021
  Receipt Date: 20141107
  Transmission Date: 20150528
  Serious: Yes (Hospitalization, Other)
  Sender: FDA-Public Use
  Company Number: MW-GLAXOSMITHKLINE-MW2014GSK005599

PATIENT
  Age: 12 Year
  Sex: Female
  Weight: 15 kg

DRUGS (5)
  1. NEVIRAPINE. [Concomitant]
     Active Substance: NEVIRAPINE
     Indication: HIV INFECTION
     Dosage: UNK
     Dates: start: 20140214, end: 20141007
  2. COTRIMOXAZOLE [Suspect]
     Active Substance: SULFAMETHOXAZOLE\TRIMETHOPRIM
     Indication: HIV INFECTION
     Dosage: UNK
     Dates: start: 20140122
  3. FOOD SUPPLEMENT NOS [Concomitant]
     Active Substance: DIETARY SUPPLEMENT
     Indication: HIV INFECTION
     Dosage: UNK
     Dates: start: 20140508
  4. ZIDOVUDINE. [Suspect]
     Active Substance: ZIDOVUDINE
     Indication: HIV INFECTION
     Dosage: UNK
     Dates: start: 20140214
  5. LAMIVUDINE. [Suspect]
     Active Substance: LAMIVUDINE
     Indication: HIV INFECTION
     Dosage: UNK
     Dates: start: 20140214

REACTIONS (4)
  - Pulmonary tuberculosis [Unknown]
  - Anaemia [Unknown]
  - Malnutrition [Unknown]
  - Weight decreased [None]

NARRATIVE: CASE EVENT DATE: 20140929
